FAERS Safety Report 12204270 (Version 1)
Quarter: 2016Q1

REPORT INFORMATION
  Report Type: Spontaneous
  Country: US (occurrence: None)
  Receive Date: 20160322
  Receipt Date: 20160322
  Transmission Date: 20160526
  Serious: Yes (Other)
  Sender: FDA-Public Use
  Company Number: None

PATIENT
  Age: 57 Year
  Sex: Male
  Weight: 86.18 kg

DRUGS (2)
  1. AMOX/K CLAV [Suspect]
     Active Substance: AMOXICILLIN\CLAVULANATE POTASSIUM
     Indication: BRONCHITIS
     Dosage: 20 PILLS TWICE DAILY TAKEN BY MOUTH
     Route: 048
     Dates: start: 20160310, end: 20160321
  2. AMOX/K CLAV [Suspect]
     Active Substance: AMOXICILLIN\CLAVULANATE POTASSIUM
     Indication: SINUSITIS
     Dosage: 20 PILLS TWICE DAILY TAKEN BY MOUTH
     Route: 048
     Dates: start: 20160310, end: 20160321

REACTIONS (6)
  - Impaired work ability [None]
  - Malaise [None]
  - Reaction to drug excipients [None]
  - Product label confusion [None]
  - Gluten sensitivity [None]
  - Muscle spasms [None]

NARRATIVE: CASE EVENT DATE: 20160321
